FAERS Safety Report 4931278-3 (Version None)
Quarter: 2006Q1

REPORT INFORMATION
  Report Type: 
  Country: None (occurrence: None)
  Receive Date: 20060227
  Receipt Date: 20060209
  Transmission Date: 20060701
  Serious: Yes (Hospitalization, Other)
  Sender: FDA-Public Use
  Company Number: 2006-DE-00740GD

PATIENT
  Sex: Male

DRUGS (5)
  1. ASPIRIN [Suspect]
     Dosage: PO
     Route: 048
     Dates: start: 20021001
  2. PREDNISONE TAB [Suspect]
     Indication: ALLERGIC RESPIRATORY DISEASE
  3. ADVAIR (SERETIDE) [Suspect]
     Indication: ALLERGIC RESPIRATORY DISEASE
     Dosage: (SEE TEXT)
  4. MONTELUKAST (MONTELUKAST) [Suspect]
     Indication: ALLERGIC RESPIRATORY DISEASE
  5. FLUTICASONE PROPIONATE [Suspect]
     Indication: ALLERGIC RESPIRATORY DISEASE
     Dosage: IN

REACTIONS (6)
  - ASTHMA [None]
  - CHRONIC SINUSITIS [None]
  - DISEASE RECURRENCE [None]
  - NASAL POLYPS [None]
  - RESPIRATORY DISORDER [None]
  - SINUSITIS [None]
